FAERS Safety Report 4431578-X (Version None)
Quarter: 2004Q3

REPORT INFORMATION
  Report Type: 
  Country: None (occurrence: None)
  Receive Date: 20040726
  Receipt Date: 20040427
  Transmission Date: 20050211
  Serious: No
  Sender: FDA-Public Use
  Company Number: USA040258562

PATIENT
  Age: 66 Year
  Sex: Female

DRUGS (1)
  1. FORTEO [Suspect]
     Indication: OSTEOPOROSIS
     Dates: start: 20040203

REACTIONS (13)
  - ARTHRALGIA [None]
  - BREAST PAIN [None]
  - CYSTITIS [None]
  - FALL [None]
  - HEADACHE [None]
  - INSOMNIA [None]
  - JOINT INJURY [None]
  - LOOSE STOOLS [None]
  - MUSCLE CRAMP [None]
  - PAIN IN EXTREMITY [None]
  - PARAESTHESIA [None]
  - SUBCUTANEOUS NODULE [None]
  - SWELLING [None]
